FAERS Safety Report 16227606 (Version 1)
Quarter: 2020Q3

REPORT INFORMATION
  Report Type: Report from Study
  Country: US (occurrence: US)
  Receive Date: 20190423
  Receipt Date: 20190423
  Transmission Date: 20201105
  Serious: Yes (Other)
  Sender: FDA-Public Use
  Company Number: US-ROCHE-1665653

PATIENT

DRUGS (5)
  1. IT?101. [Suspect]
     Active Substance: IT-101
     Dosage: RECOMMENDED DOSE
     Route: 065
  2. 5?FU [FLUOROURACIL] [Suspect]
     Active Substance: FLUOROURACIL
     Indication: RECTAL CANCER
     Route: 065
  3. IT?101. [Suspect]
     Active Substance: IT-101
     Indication: RECTAL CANCER
     Dosage: ON WEEKS 1, 3, 5 (INITIAL PHASE IB AND PHASE II) OR WEEKLY (SUBSEQUENT PHASE IB)
     Route: 042
  4. CAPECITABINE. [Suspect]
     Active Substance: CAPECITABINE
     Indication: RECTAL CANCER
     Dosage: RECEIVED MONDAY TO FRIDAY FOR THE DURATION OF RADIOTHERAPY.
     Route: 048
  5. DEXAMETHASONE. [Concomitant]
     Active Substance: DEXAMETHASONE
     Indication: PREMEDICATION

REACTIONS (11)
  - Anaemia [Unknown]
  - Lymphopenia [Unknown]
  - Colitis [Unknown]
  - Hypophosphataemia [Unknown]
  - Diarrhoea [Unknown]
  - Thrombotic thrombocytopenic purpura [Unknown]
  - Neutropenia [Unknown]
  - Rectal haemorrhage [Unknown]
  - Leukopenia [Unknown]
  - Cystitis [Unknown]
  - Rectal obstruction [Unknown]
